FAERS Safety Report 20966277 (Version 1)
Quarter: 2022Q2

REPORT INFORMATION
  Report Type: Spontaneous
  Country: BR (occurrence: BR)
  Receive Date: 20220616
  Receipt Date: 20220616
  Transmission Date: 20220721
  Serious: Yes (Death, Life-Threatening, Hospitalization, Other)
  Sender: FDA-Public Use
  Company Number: BR-MLMSERVICE-20220602-3594642-1

PATIENT
  Age: 52 Year
  Sex: Male

DRUGS (3)
  1. MYCOPHENOLIC ACID [Suspect]
     Active Substance: MYCOPHENOLIC ACID
     Indication: Immunosuppressant drug therapy
  2. TACROLIMUS [Suspect]
     Active Substance: TACROLIMUS
     Indication: Immunosuppressant drug therapy
  3. PREDNISONE [Suspect]
     Active Substance: PREDNISONE
     Indication: Immunosuppressant drug therapy
     Route: 048

REACTIONS (9)
  - Leukopenia [Fatal]
  - Infection reactivation [Fatal]
  - Renal failure [Fatal]
  - Disseminated tuberculosis [Fatal]
  - Hepatic failure [Fatal]
  - Pulmonary congestion [Fatal]
  - Meningitis [Fatal]
  - Haemophagocytic lymphohistiocytosis [Fatal]
  - Shock [Fatal]
